FAERS Safety Report 10780078 (Version 2)
Quarter: 2015Q1

REPORT INFORMATION
  Report Type: Spontaneous
  Country: CH (occurrence: None)
  Receive Date: 20150206
  Receipt Date: 20150224
  Transmission Date: 20150721
  Serious: Yes (Other)
  Sender: FDA-Public Use
  Company Number: 20150056

PATIENT
  Age: 43 Year
  Sex: Female
  Weight: 50 kg

DRUGS (2)
  1. FERINJECT [Suspect]
     Active Substance: FERRIC CARBOXYMALTOSE
     Indication: IRON DEFICIENCY ANAEMIA
     Dosage: 1 IN 1 TOTAL
     Route: 041
     Dates: start: 20150115, end: 20150115
  2. L-THYROXIN (LEVOTHYROXINE SODIUM) [Concomitant]

REACTIONS (4)
  - Chest discomfort [None]
  - Tachycardia [None]
  - Blood pressure increased [None]
  - Hyperventilation [None]

NARRATIVE: CASE EVENT DATE: 20150115
